FAERS Safety Report 16971412 (Version 1)
Quarter: 2019Q4

REPORT INFORMATION
  Report Type: Spontaneous
  Country: FR (occurrence: FR)
  Receive Date: 20191029
  Receipt Date: 20191029
  Transmission Date: 20200122
  Serious: Yes (Hospitalization)
  Sender: FDA-Public Use
  Company Number: FR-ASTRAZENECA-2019SF49962

PATIENT
  Age: 93 Year
  Sex: Female
  Weight: 55 kg

DRUGS (12)
  1. CITALOPRAM [Suspect]
     Active Substance: CITALOPRAM HYDROBROMIDE
     Indication: PRODUCT USED FOR UNKNOWN INDICATION
     Route: 048
     Dates: end: 20181229
  2. LASILIX [Suspect]
     Active Substance: FUROSEMIDE
     Indication: HYPERTENSION
     Route: 048
     Dates: end: 20181229
  3. BISOPROLOL [Concomitant]
     Active Substance: BISOPROLOL
  4. DIGOXINE NATIVELLE [Suspect]
     Active Substance: DIGOXIN
     Indication: ATRIAL FIBRILLATION
     Route: 048
     Dates: end: 20181229
  5. LEVOTHYROX [Concomitant]
     Active Substance: LEVOTHYROXINE
  6. MOPRAL [Suspect]
     Active Substance: OMEPRAZOLE
     Indication: GASTROOESOPHAGEAL REFLUX DISEASE
     Route: 048
     Dates: end: 20181229
  7. MOVICOL [Concomitant]
     Active Substance: POLYETHYLENE GLYCOL 3350\POTASSIUM CHLORIDE\SODIUM BICARBONATE\SODIUM CHLORIDE
  8. ELIQUIS [Suspect]
     Active Substance: APIXABAN
     Indication: ATRIAL FIBRILLATION
     Route: 048
     Dates: end: 20181228
  9. DOLIPRANE [Concomitant]
     Active Substance: ACETAMINOPHEN
  10. SERESTA [Concomitant]
     Active Substance: OXAZEPAM
  11. DIFFU K [Concomitant]
     Active Substance: POTASSIUM CHLORIDE
  12. IMOVANE [Suspect]
     Active Substance: ZOPICLONE
     Indication: PRODUCT USED FOR UNKNOWN INDICATION
     Route: 048
     Dates: end: 20181228

REACTIONS (2)
  - Fall [Not Recovered/Not Resolved]
  - Subdural haematoma [Not Recovered/Not Resolved]

NARRATIVE: CASE EVENT DATE: 201812
